FAERS Safety Report 17723780 (Version 6)
Quarter: 2022Q1

REPORT INFORMATION
  Report Type: Spontaneous
  Country: US (occurrence: US)
  Receive Date: 20200429
  Receipt Date: 20220216
  Transmission Date: 20220423
  Serious: Yes (Other)
  Sender: FDA-Public Use
  Company Number: US-PFIZER INC-2020168671

PATIENT
  Age: 64 Year
  Sex: Female

DRUGS (3)
  1. XELJANZ XR [Suspect]
     Active Substance: TOFACITINIB CITRATE
     Indication: Rheumatoid arthritis
     Dosage: 11 MG, DAILY
     Route: 048
     Dates: start: 20200309, end: 20200423
  2. XELJANZ XR [Suspect]
     Active Substance: TOFACITINIB CITRATE
     Dosage: 11 MG, DAILY
     Route: 048
     Dates: start: 2020, end: 2020
  3. XELJANZ XR [Suspect]
     Active Substance: TOFACITINIB CITRATE
     Dosage: 11 MG, DAILY
     Dates: start: 20211115

REACTIONS (14)
  - Renal impairment [Recovering/Resolving]
  - Rheumatoid arthritis [Unknown]
  - Spinal operation [Unknown]
  - Product dose omission issue [Unknown]
  - Gastric disorder [Recovering/Resolving]
  - Protein total decreased [Unknown]
  - Pain [Not Recovered/Not Resolved]
  - Nausea [Recovering/Resolving]
  - Depression [Unknown]
  - Back pain [Unknown]
  - Fall [Unknown]
  - Fatigue [Unknown]
  - Therapeutic product effect delayed [Unknown]
  - Arthropathy [Unknown]

NARRATIVE: CASE EVENT DATE: 20200101
